FAERS Safety Report 5199474-0 (Version None)
Quarter: 2006Q4

REPORT INFORMATION
  Report Type: 
  Country: None (occurrence: None)
  Receive Date: 20061229
  Receipt Date: 20061219
  Transmission Date: 20070319
  Serious: Yes (Hospitalization, Other)
  Sender: FDA-Public Use
  Company Number: TRP_0828_2006

PATIENT
  Sex: Female
  Weight: 5.4432 kg

DRUGS (2)
  1. RIBASPHERE [Suspect]
     Dosage: 1200 MG QDAY PO
     Route: 048
     Dates: start: 20050101, end: 20050702
  2. PEG-INTRON [Suspect]
     Dosage: DF SC
     Route: 058
     Dates: start: 20050101, end: 20050702

REACTIONS (7)
  - GASTROOESOPHAGEAL REFLUX DISEASE [None]
  - PREGNANCY [None]
  - PREMATURE BABY [None]
  - PREMATURE RUPTURE OF MEMBRANES [None]
  - SMALL FOR DATES BABY [None]
  - TOBACCO USER [None]
  - TRANSMISSION OF DRUG VIA SEMEN [None]
